FAERS Safety Report 8163214-3 (Version None)
Quarter: 2012Q1

REPORT INFORMATION
  Report Type: 
  Country: None (occurrence: None)
  Receive Date: 20120224
  Receipt Date: 20110422
  Transmission Date: 20120608
  Serious: No
  Sender: FDA-Public Use
  Company Number: US-PFIZER INC-K201100499

PATIENT
  Age: 64 Year
  Sex: Female
  Weight: 56.689 kg

DRUGS (4)
  1. FLECTOR [Suspect]
     Dosage: 1 PATCH, SINGLE
     Route: 061
     Dates: start: 20110424, end: 20110424
  2. THYROID THERAPY [Concomitant]
     Indication: HYPOTHYROIDISM
     Dosage: UNK
  3. FLECTOR [Suspect]
     Indication: BACK PAIN
     Dosage: 1 PATCH, EVERY 12 HOURS
     Route: 061
     Dates: start: 20110420, end: 20110422
  4. TEMAZEPAM [Concomitant]
     Indication: INSOMNIA
     Dosage: UNK

REACTIONS (3)
  - SOMNOLENCE [None]
  - DIZZINESS [None]
  - NAUSEA [None]
